FAERS Safety Report 24638936 (Version 1)
Quarter: 2024Q4

REPORT INFORMATION
  Report Type: Spontaneous
  Country: US (occurrence: US)
  Receive Date: 20241119
  Receipt Date: 20241119
  Transmission Date: 20250115
  Serious: No
  Sender: SANOFI AVENTIS
  Company Number: US-SA-2024SA334356

PATIENT
  Age: 53 Year
  Sex: Female

DRUGS (27)
  1. DUPIXENT [Suspect]
     Active Substance: DUPILUMAB
     Indication: Asthma
     Dosage: 300.000MG
     Route: 058
     Dates: start: 20240918, end: 2024
  2. PREDNISONE [Concomitant]
     Active Substance: PREDNISONE
  3. NUCALA [Concomitant]
     Active Substance: MEPOLIZUMAB
  4. OZEMPIC [Concomitant]
     Active Substance: SEMAGLUTIDE
     Dosage: UNK
  5. NORA BE [Concomitant]
     Active Substance: NORETHINDRONE
  6. TRAZODONE [Concomitant]
     Active Substance: TRAZODONE HYDROCHLORIDE
     Dosage: UNK
  7. AZELASTINE [Concomitant]
     Active Substance: AZELASTINE
  8. PIOGLITAZONE [Concomitant]
     Active Substance: PIOGLITAZONE
  9. COLESTIPOL [Concomitant]
     Active Substance: COLESTIPOL
  10. MAGNESIUM [Concomitant]
     Active Substance: MAGNESIUM
  11. LEXAPRO [Concomitant]
     Active Substance: ESCITALOPRAM OXALATE
  12. RIZATRIPTAN [Concomitant]
     Active Substance: RIZATRIPTAN
     Dosage: UNK
  13. LOSARTAN [Concomitant]
     Active Substance: LOSARTAN
     Dosage: UNK
  14. ACYCLOVIR [Concomitant]
     Active Substance: ACYCLOVIR
  15. VITAMIN B12 [Concomitant]
     Active Substance: CYANOCOBALAMIN
  16. SULFASALAZINE [Concomitant]
     Active Substance: SULFASALAZINE
  17. RYBELSUS [Concomitant]
     Active Substance: SEMAGLUTIDE
  18. XOPENEX [Concomitant]
     Active Substance: LEVALBUTEROL HYDROCHLORIDE
  19. CLOTRIMAZOLE [Concomitant]
     Active Substance: CLOTRIMAZOLE
     Dosage: UNK
  20. EPIPEN [Concomitant]
     Active Substance: EPINEPHRINE
  21. ZALEPLON [Concomitant]
     Active Substance: ZALEPLON
  22. TYLENOL [Concomitant]
     Active Substance: ACETAMINOPHEN
     Dosage: UNK
  23. IMODIUM A-D [Concomitant]
     Active Substance: LOPERAMIDE HYDROCHLORIDE
  24. SIMETHICONE (DIMETHICONE) [Concomitant]
     Active Substance: DIMETHICONE
  25. FLUTICASONE [Concomitant]
     Active Substance: FLUTICASONE
     Dosage: UNK
  26. ONDANSETRON [Concomitant]
     Active Substance: ONDANSETRON
  27. HUMIRA [Concomitant]
     Active Substance: ADALIMUMAB
     Dosage: UNK

REACTIONS (4)
  - Eye swelling [Unknown]
  - Gingival swelling [Unknown]
  - Swelling face [Unknown]
  - Eye pain [Unknown]

NARRATIVE: CASE EVENT DATE: 20241107
